FAERS Safety Report 5506524-8 (Version None)
Quarter: 2007Q4

REPORT INFORMATION
  Report Type: 
  Country: None (occurrence: None)
  Receive Date: 20071105
  Receipt Date: 20071030
  Transmission Date: 20080405
  Serious: Yes (Hospitalization)
  Sender: FDA-Public Use
  Company Number: B0478083A

PATIENT
  Age: 84 Year
  Sex: Female
  Weight: 42 kg

DRUGS (8)
  1. ARIXTRA [Suspect]
     Indication: THROMBOSIS PROPHYLAXIS
     Dosage: 1.5MG PER DAY
     Route: 058
     Dates: start: 20070630, end: 20070702
  2. LOXONIN [Suspect]
     Indication: PAIN
     Dosage: 60MG THREE TIMES PER DAY
     Route: 048
     Dates: start: 20070629, end: 20070702
  3. MUCOSTA [Concomitant]
     Indication: PROPHYLAXIS
     Dosage: 300G PER DAY
     Route: 048
     Dates: start: 20070629, end: 20070702
  4. NORVASC [Concomitant]
     Route: 048
  5. BLOPRESS [Concomitant]
     Route: 048
  6. PRAVASTATIN [Concomitant]
     Route: 048
  7. MAGLAX [Concomitant]
     Route: 048
  8. PLETAL [Concomitant]
     Route: 048

REACTIONS (2)
  - GASTRIC ULCER HAEMORRHAGE [None]
  - HAEMATEMESIS [None]
